FAERS Safety Report 7270939-0 (Version None)
Quarter: 2011Q1

REPORT INFORMATION
  Report Type: 
  Country: None (occurrence: None)
  Receive Date: 20110202
  Receipt Date: 20110118
  Transmission Date: 20110831
  Serious: Yes (Other)
  Sender: FDA-Public Use
  Company Number: PL-CELGENEUS-129-21880-11011738

PATIENT
  Sex: Female

DRUGS (3)
  1. ACARD [Concomitant]
     Route: 065
  2. DEXAMETHASONE [Concomitant]
     Route: 065
  3. REVLIMID [Suspect]
     Indication: MULTIPLE MYELOMA
     Route: 048
     Dates: start: 20101011, end: 20110104

REACTIONS (4)
  - HYPERHIDROSIS [None]
  - DYSGEUSIA [None]
  - AGEUSIA [None]
  - ASTHENIA [None]
